FAERS Safety Report 5060745-X (Version None)
Quarter: 2006Q3

REPORT INFORMATION
  Report Type: 
  Country: None (occurrence: None)
  Receive Date: 20060725
  Receipt Date: 20060711
  Transmission Date: 20061208
  Serious: Yes (Hospitalization)
  Sender: FDA-Public Use
  Company Number: DE-JNJFOC-20051103872

PATIENT
  Age: 77 Year
  Sex: Male

DRUGS (11)
  1. REMINYL [Interacting]
     Indication: DEMENTIA ALZHEIMER'S TYPE
     Route: 048
  2. DOMINAL [Suspect]
     Indication: DRUG USE FOR UNKNOWN INDICATION
     Route: 048
  3. AXURA [Suspect]
     Indication: DRUG USE FOR UNKNOWN INDICATION
     Route: 048
  4. TAVOR [Concomitant]
     Route: 048
  5. TAVOR [Concomitant]
     Route: 048
  6. TAVOR [Concomitant]
     Route: 048
  7. GLUCOBAY [Concomitant]
     Route: 048
  8. METOPROLOL TARTRATE [Concomitant]
     Route: 048
  9. CAPTOGAMMA [Concomitant]
     Route: 048
  10. ASPIRIN [Concomitant]
     Route: 048
  11. PRAVASIN [Concomitant]
     Route: 048

REACTIONS (3)
  - DRUG INTERACTION [None]
  - FALL [None]
  - PLEUROTHOTONUS [None]
